FAERS Safety Report 5664812-9 (Version None)
Quarter: 2008Q1

REPORT INFORMATION
  Report Type: 
  Country: None (occurrence: None)
  Receive Date: 20080314
  Receipt Date: 20080228
  Transmission Date: 20080703
  Serious: No
  Sender: FDA-Public Use
  Company Number: DE-BAXTER-2008BH001752

PATIENT
  Age: 59 Year
  Sex: Female
  Weight: 60 kg

DRUGS (1)
  1. GAMMAGARD LIQUID [Suspect]
     Indication: NON-HODGKIN'S LYMPHOMA
     Dosage: DOSE UNIT:UNKNOWN
     Route: 042
     Dates: start: 20080227, end: 20080227

REACTIONS (4)
  - BLOOD PRESSURE DECREASED [None]
  - DIZZINESS [None]
  - HYPERHIDROSIS [None]
  - HYPERSENSITIVITY [None]
